FAERS Safety Report 8401321-8 (Version None)
Quarter: 2012Q2

REPORT INFORMATION
  Report Type: 
  Country: None (occurrence: None)
  Receive Date: 20120525
  Receipt Date: 20090326
  Transmission Date: 20120825
  Serious: Yes (Other)
  Sender: FDA-Public Use
  Company Number: 09-AUR-09650

PATIENT
  Age: 57 Year
  Sex: Male
  Weight: 86.2 kg

DRUGS (1)
  1. SIMVASTATIN [Suspect]
     Indication: HYPERLIPIDAEMIA
     Dosage: (21 DAYS)

REACTIONS (4)
  - MUSCLE DISORDER [None]
  - FATIGUE [None]
  - DYSPNOEA [None]
  - PERFORMANCE STATUS DECREASED [None]
